FAERS Safety Report 9680086 (Version 1)
Quarter: 2013Q4

REPORT INFORMATION
  Report Type: Spontaneous
  Country: US (occurrence: US)
  Receive Date: 20131111
  Receipt Date: 20131111
  Transmission Date: 20140711
  Serious: Yes (Other)
  Sender: FDA-Public Use
  Company Number: US-JNJCP-30000186314

PATIENT
  Sex: 0

DRUGS (8)
  1. CLEAN + CLEAR CONTINUOUS CONTROL ACNE CLEANSER [Suspect]
     Indication: ACNE
     Dosage: DAILY
     Route: 061
  2. NO DRUG NAME [Concomitant]
  3. NO DRUG NAME [Concomitant]
  4. NO DRUG NAME [Concomitant]
  5. NO DRUG NAME [Concomitant]
  6. NO DRUG NAME [Concomitant]
  7. NO DRUG NAME [Concomitant]
  8. NO DRUG NAME [Concomitant]

REACTIONS (6)
  - Application site swelling [Unknown]
  - Dyspnoea [Unknown]
  - Acne cosmetica [Unknown]
  - Application site pruritus [Unknown]
  - Application site erythema [Unknown]
  - Drug ineffective [Unknown]
